FAERS Safety Report 9373934 (Version 3)
Quarter: 2015Q1

REPORT INFORMATION
  Report Type: Spontaneous
  Country: BR (occurrence: BR)
  Receive Date: 20130628
  Receipt Date: 20150330
  Transmission Date: 20150721
  Serious: Yes (Other)
  Sender: FDA-Public Use
  Company Number: BR-ROCHE-537697

PATIENT
  Age: 48 Year
  Sex: Female
  Weight: 78 kg

DRUGS (24)
  1. HIDANTAL [Concomitant]
     Active Substance: PHENYTOIN SODIUM
     Indication: SEIZURE
     Route: 048
  2. HIDANTAL [Concomitant]
     Active Substance: PHENYTOIN SODIUM
     Indication: DEPRESSION
     Dosage: 2 TABLETS IN THE MORNING AND 2 AT NIGHT
     Route: 048
  3. RIVOTRIL [Suspect]
     Active Substance: CLONAZEPAM
     Indication: PETIT MAL EPILEPSY
     Route: 048
  4. RIVOTRIL [Suspect]
     Active Substance: CLONAZEPAM
     Route: 048
  5. TRILEPTAL [Concomitant]
     Active Substance: OXCARBAZEPINE
     Route: 048
  6. RIVOTRIL [Suspect]
     Active Substance: CLONAZEPAM
     Indication: BIPOLAR DISORDER
     Route: 048
  7. RIVOTRIL [Suspect]
     Active Substance: CLONAZEPAM
     Indication: SEIZURE
     Route: 048
  8. TRILEPTAL [Concomitant]
     Active Substance: OXCARBAZEPINE
     Indication: EPILEPSY
     Route: 048
  9. TEGRETOL [Concomitant]
     Active Substance: CARBAMAZEPINE
  10. RIVOTRIL [Suspect]
     Active Substance: CLONAZEPAM
     Dosage: 3 DROSP AS MAINTENENCE THERAPY.
     Route: 048
  11. RIVOTRIL [Suspect]
     Active Substance: CLONAZEPAM
     Route: 048
  12. RIVOTRIL [Suspect]
     Active Substance: CLONAZEPAM
     Route: 048
  13. GARDENAL [Concomitant]
     Active Substance: PHENOBARBITAL
     Indication: DEPRESSION
  14. CARBOLITIUM [Concomitant]
     Active Substance: LITHIUM CARBONATE
     Dosage: 1 TABLET IN THE MORNING AND 1 AT NIGHT
     Route: 065
  15. TRYPTANOL [Concomitant]
     Active Substance: AMITRIPTYLINE
     Indication: ANXIETY
     Dosage: DRUG NAME REPORTED AS: TRYPTAL(UNABLE TO FIND IN ADVENT)
     Route: 065
  16. HIDANTAL [Concomitant]
     Active Substance: PHENYTOIN SODIUM
     Indication: BIPOLAR DISORDER
  17. RIVOTRIL [Suspect]
     Active Substance: CLONAZEPAM
     Indication: ANXIETY
     Route: 048
  18. CLONAZEPAM. [Suspect]
     Active Substance: CLONAZEPAM
     Indication: ANXIETY
  19. CLONAZEPAM. [Suspect]
     Active Substance: CLONAZEPAM
     Indication: DEPRESSION
  20. CLONAZEPAM. [Suspect]
     Active Substance: CLONAZEPAM
     Indication: PETIT MAL EPILEPSY
     Route: 065
     Dates: start: 2015
  21. GARDENAL [Concomitant]
     Active Substance: PHENOBARBITAL
     Indication: BIPOLAR DISORDER
  22. RIVOTRIL [Suspect]
     Active Substance: CLONAZEPAM
     Indication: DEPRESSION
     Route: 048
     Dates: start: 20071212, end: 200804
  23. RIVOTRIL [Suspect]
     Active Substance: CLONAZEPAM
     Route: 048
  24. RIVOTRIL [Suspect]
     Active Substance: CLONAZEPAM
     Route: 048

REACTIONS (13)
  - No therapeutic response [Unknown]
  - Seizure [Not Recovered/Not Resolved]
  - Nervousness [Not Recovered/Not Resolved]
  - Therapeutic response decreased [Not Recovered/Not Resolved]
  - Drug ineffective [Unknown]
  - Medication error [Unknown]
  - Drug tolerance [Not Recovered/Not Resolved]
  - Amnesia [Recovered/Resolved]
  - Anxiety [Not Recovered/Not Resolved]
  - Antipsychotic drug level decreased [Unknown]
  - Malaise [Recovered/Resolved]
  - Anxiety [Recovering/Resolving]
  - Nausea [Not Recovered/Not Resolved]

NARRATIVE: CASE EVENT DATE: 200710
